FAERS Safety Report 26037310 (Version 3)
Quarter: 2025Q4

REPORT INFORMATION
  Report Type: Spontaneous
  Country: CN (occurrence: CN)
  Receive Date: 20251112
  Receipt Date: 20251205
  Transmission Date: 20260117
  Serious: Yes (Hospitalization, Other)
  Sender: NOVO NORDISK
  Company Number: CN-NOVOPROD-1556734

PATIENT
  Age: 71 Year
  Sex: Male
  Weight: 60 kg

DRUGS (6)
  1. NOVOLIN R [Suspect]
     Active Substance: INSULIN HUMAN
     Indication: Diabetes mellitus
     Dosage: 12-13 U TWICE A DAY, ONCE IN THE MORNING AND ONCE IN THE EVENING
  2. NOVOLIN R [Suspect]
     Active Substance: INSULIN HUMAN
     Dosage: 5-6 U AT NOON
     Dates: start: 2024, end: 202508
  3. NOVOLIN R [Suspect]
     Active Substance: INSULIN HUMAN
     Dosage: UNK(SWITCHED BACK)
  4. INSULIN GLARGINE [Suspect]
     Active Substance: INSULIN GLARGINE
     Indication: Diabetes mellitus
     Dosage: 6 IU, QD(BEFORE BEDTIME)
  5. NOVORAPID [Concomitant]
     Active Substance: INSULIN ASPART
     Indication: Diabetes mellitus
     Dosage: 10 IU, BID
  6. INSULIN ASPART [Suspect]
     Active Substance: INSULIN ASPART
     Indication: Diabetes mellitus
     Dosage: 8 IU, TID

REACTIONS (6)
  - Cataract [Unknown]
  - Diabetes mellitus inadequate control [Not Recovered/Not Resolved]
  - Hypoglycaemic coma [Recovered/Resolved]
  - Diabetic foot [Not Recovered/Not Resolved]
  - Hypoglycaemia [Not Recovered/Not Resolved]
  - Blood glucose increased [Unknown]

NARRATIVE: CASE EVENT DATE: 20240101
